FAERS Safety Report 8371990-X (Version None)
Quarter: 2012Q2

REPORT INFORMATION
  Report Type: 
  Country: None (occurrence: None)
  Receive Date: 20120518
  Receipt Date: 20120510
  Transmission Date: 20120825
  Serious: Yes (Hospitalization)
  Sender: FDA-Public Use
  Company Number: US-BIOMARINP-002562

PATIENT
  Sex: Female
  Weight: 50 kg

DRUGS (4)
  1. UNSPECIFIED ANTIBIOTIC [Concomitant]
     Indication: SINUSITIS
  2. KUVAN [Suspect]
     Indication: PHENYLKETONURIA
     Route: 048
     Dates: start: 20080601
  3. FLAGYL [Concomitant]
  4. VANCOMYCIN [Concomitant]

REACTIONS (1)
  - CLOSTRIDIUM DIFFICILE COLITIS [None]
